FAERS Safety Report 8393265-5 (Version None)
Quarter: 2012Q2

REPORT INFORMATION
  Report Type: 
  Country: None (occurrence: None)
  Receive Date: 20120529
  Receipt Date: 20120522
  Transmission Date: 20120825
  Serious: Yes (Other)
  Sender: FDA-Public Use
  Company Number: US-PFIZER INC-2012123888

PATIENT
  Sex: Female

DRUGS (1)
  1. REVATIO [Suspect]
     Dosage: UNK

REACTIONS (3)
  - EXPIRED DRUG ADMINISTERED [None]
  - PULMONARY HYPERTENSION [None]
  - GENERAL PHYSICAL HEALTH DETERIORATION [None]
